FAERS Safety Report 13848804 (Version 1)
Quarter: 2017Q3

REPORT INFORMATION
  Report Type: Spontaneous
  Country: US (occurrence: US)
  Receive Date: 20170809
  Receipt Date: 20170809
  Transmission Date: 20171127
  Serious: Yes (Death, Hospitalization)
  Sender: FDA-Public Use
  Company Number: US-VIFOR (INTERNATIONAL) INC.-VIT-2016-08543

PATIENT
  Age: 82 Year
  Sex: Female
  Weight: 59.02 kg

DRUGS (13)
  1. ATORVASTATIN [Concomitant]
     Active Substance: ATORVASTATIN
  2. CARVEDILOL. [Concomitant]
     Active Substance: CARVEDILOL
  3. ACETYLSALICYLIC ACID [Concomitant]
     Active Substance: ASPIRIN
  4. OMEPRAZOLE. [Concomitant]
     Active Substance: OMEPRAZOLE
  5. ISOSORBIDE. [Concomitant]
     Active Substance: ISOSORBIDE
  6. AMIODARONE [Concomitant]
     Active Substance: AMIODARONE
  7. TRAZODONE [Concomitant]
     Active Substance: TRAZODONE HYDROCHLORIDE
  8. VELTASSA [Suspect]
     Active Substance: PATIROMER
     Indication: HYPERKALAEMIA
     Route: 048
     Dates: start: 201609, end: 201610
  9. NOVOLOG [Concomitant]
     Active Substance: INSULIN ASPART
  10. PENTOXIFYLLINE. [Concomitant]
     Active Substance: PENTOXIFYLLINE
  11. SPIRIVA [Concomitant]
     Active Substance: TIOTROPIUM BROMIDE MONOHYDRATE
  12. ZOLOFT [Concomitant]
     Active Substance: SERTRALINE HYDROCHLORIDE
  13. MIDODRINE [Concomitant]
     Active Substance: MIDODRINE

REACTIONS (9)
  - Acidosis [Fatal]
  - Sepsis [Fatal]
  - Cardiac failure [Recovered/Resolved]
  - Fluid overload [Unknown]
  - Dyspnoea [Unknown]
  - Respiratory disorder [Unknown]
  - Respiratory distress [Unknown]
  - Bacterial diarrhoea [Unknown]
  - Diarrhoea [Recovered/Resolved]

NARRATIVE: CASE EVENT DATE: 2016
